FAERS Safety Report 5570475-3 (Version None)
Quarter: 2007Q4

REPORT INFORMATION
  Report Type: 
  Country: None (occurrence: None)
  Receive Date: 20071221
  Receipt Date: 20071015
  Transmission Date: 20080405
  Serious: No
  Sender: FDA-Public Use
  Company Number: US-BRISTOL-MYERS SQUIBB COMPANY-13936992

PATIENT
  Age: 72 Year
  Sex: Female
  Weight: 82 kg

DRUGS (8)
  1. ORENCIA [Suspect]
     Indication: RHEUMATOID ARTHRITIS
     Route: 042
     Dates: start: 20070101
  2. XANAX [Concomitant]
  3. OXYCODONE HCL [Concomitant]
  4. EFFEXOR XR [Concomitant]
  5. INDAPAMIDE [Concomitant]
  6. ADVAIR DISKUS 100/50 [Concomitant]
  7. METHOTREXATE [Concomitant]
  8. MULTI-VITAMIN [Concomitant]

REACTIONS (5)
  - ANAEMIA [None]
  - DYSPHONIA [None]
  - FATIGUE [None]
  - PAIN [None]
  - RHINORRHOEA [None]
